FAERS Safety Report 18101746 (Version 1)
Quarter: 2020Q3

REPORT INFORMATION
  Report Type: Spontaneous
  Country: US (occurrence: US)
  Receive Date: 20200802
  Receipt Date: 20200802
  Transmission Date: 20201103
  Serious: No
  Sender: FDA-Public Use
  Company Number: US-SA-2020SA199093

PATIENT

DRUGS (8)
  1. ESTARYLLA [Concomitant]
     Active Substance: ETHINYL ESTRADIOL\NORGESTIMATE
  2. LEVOCETIRIZINE DIHYDROCHLORIDE. [Concomitant]
     Active Substance: LEVOCETIRIZINE DIHYDROCHLORIDE
  3. DUPIXENT [Suspect]
     Active Substance: DUPILUMAB
     Indication: DERMATITIS ATOPIC
     Dosage: 300 MG, QOW
     Route: 058
     Dates: start: 202002
  4. VITAMIN D3 [Concomitant]
     Active Substance: CHOLECALCIFEROL
  5. BIOTIN [Concomitant]
     Active Substance: BIOTIN
  6. XOLAIR [Concomitant]
     Active Substance: OMALIZUMAB
  7. HUMIRA [Concomitant]
     Active Substance: ADALIMUMAB
  8. SPIRONOLACTONE. [Concomitant]
     Active Substance: SPIRONOLACTONE

REACTIONS (1)
  - Vision blurred [Unknown]

NARRATIVE: CASE EVENT DATE: 202007
